FAERS Safety Report 6031671-4 (Version None)
Quarter: 2009Q1

REPORT INFORMATION
  Report Type: 
  Country: None (occurrence: None)
  Receive Date: 20090107
  Receipt Date: 20090107
  Transmission Date: 20090719
  Serious: Yes (Other)
  Sender: FDA-Public Use
  Company Number: None

PATIENT
  Age: 62 Year
  Sex: Female
  Weight: 63.5036 kg

DRUGS (1)
  1. LAMISIL [Suspect]
     Indication: TINEA PEDIS
     Dosage: 1 TABLET FOR 1 WK - STOP 1 WK AND REPEAT ONE DAILY MOUTH
     Route: 048
     Dates: start: 20080930, end: 20081118

REACTIONS (5)
  - DRY MOUTH [None]
  - DYSGEUSIA [None]
  - GLOSSODYNIA [None]
  - TONGUE DISORDER [None]
  - WEIGHT DECREASED [None]
